FAERS Safety Report 18704875 (Version 3)
Quarter: 2021Q1

REPORT INFORMATION
  Report Type: Report from Study
  Country: None (occurrence: US)
  Receive Date: 20210105
  Receipt Date: 20210202
  Transmission Date: 20210419
  Serious: Yes (Other)
  Sender: FDA-Public Use
  Company Number: US-ABBVIE-20K-163-3659147-00

PATIENT
  Sex: Female

DRUGS (24)
  1. VENCLEXTA [Suspect]
     Active Substance: VENETOCLAX
     Dosage: ON WEEK THREE. GIVE WITH FOOD DO NOT CUT, CRUSH, CHEW TAB
     Route: 048
  2. ALINIA [Concomitant]
     Active Substance: NITAZOXANIDE
     Indication: PRODUCT USED FOR UNKNOWN INDICATION
     Dosage: TAKE ONE TABLET BY MOUTH EVERY 12 HOURS WITH FOOD.
     Route: 048
     Dates: start: 20201106
  3. DMSA [Concomitant]
     Active Substance: SUCCIMER
     Indication: PRODUCT USED FOR UNKNOWN INDICATION
     Dosage: 1500MG THREE CAPSULES ONCE.
     Route: 048
     Dates: start: 20201120, end: 20201214
  4. RITUXAN [Suspect]
     Active Substance: RITUXIMAB
     Indication: PRODUCT USED FOR UNKNOWN INDICATION
     Route: 065
  5. KEYTRUDA [Concomitant]
     Active Substance: PEMBROLIZUMAB
     Indication: PRODUCT USED FOR UNKNOWN INDICATION
     Dosage: INTRAVENOUSLY EVERY SIX WEEKS
     Route: 042
     Dates: start: 20201202
  6. SPIRONOLACTONE. [Concomitant]
     Active Substance: SPIRONOLACTONE
     Indication: PRODUCT USED FOR UNKNOWN INDICATION
     Dosage: 100 MG ORAL TABLET DAILY MORNING.
     Route: 048
     Dates: end: 20201216
  7. VENCLEXTA [Suspect]
     Active Substance: VENETOCLAX
     Indication: B-CELL LYMPHOMA
     Dosage: ON WEEK ONE. GIVE WITH FOOD DO NOT CUT, CRUSH, CHEW TAB
     Route: 048
  8. VALTREX [Concomitant]
     Active Substance: VALACYCLOVIR HYDROCHLORIDE
     Indication: PRODUCT USED FOR UNKNOWN INDICATION
     Route: 048
  9. METFORMIN HCL [Concomitant]
     Active Substance: METFORMIN HYDROCHLORIDE
     Indication: PRODUCT USED FOR UNKNOWN INDICATION
     Dosage: ER, BY MOUTH DAILY WITH EVENING MEAL
     Route: 048
     Dates: start: 20210111
  10. ONDANSETRON [Concomitant]
     Active Substance: ONDANSETRON
     Indication: PRODUCT USED FOR UNKNOWN INDICATION
     Dosage: PLACE ONE TABLET 8 MG ON THE TONGUE AND ALLOW TO DISSOLVE EVERY 8 HOURS AS NEEDED.
     Route: 048
     Dates: start: 20201202
  11. NPLATE [Suspect]
     Active Substance: ROMIPLOSTIM
     Indication: PRODUCT USED FOR UNKNOWN INDICATION
     Route: 065
     Dates: start: 20210121
  12. METOCLOPRAMIDE HCL [Concomitant]
     Active Substance: METOCLOPRAMIDE HYDROCHLORIDE
     Indication: PRODUCT USED FOR UNKNOWN INDICATION
     Dosage: 5 MG PER ML  INJECTION SOLUTION
     Route: 050
  13. DMPS [Concomitant]
     Active Substance: 2,3-DIMERCAPTO-1-PROPANESULFONIC ACID
     Indication: PRODUCT USED FOR UNKNOWN INDICATION
     Dosage: 1000MG TWO CAPSULES ONCE.
     Route: 048
     Dates: start: 20201120, end: 20201214
  14. CYCLOPHOSPHAMIDE. [Concomitant]
     Active Substance: CYCLOPHOSPHAMIDE
     Indication: PRODUCT USED FOR UNKNOWN INDICATION
     Route: 048
     Dates: end: 20210122
  15. VENCLEXTA [Suspect]
     Active Substance: VENETOCLAX
     Dosage: ON WEEK TWO. GIVE WITH FOOD DO NOT CUT, CRUSH, CHEW TAB
     Route: 048
  16. GAZYVA [Suspect]
     Active Substance: OBINUTUZUMAB
     Indication: B-CELL LYMPHOMA
     Dosage: STRENGTH? 25MG/ML
     Route: 042
     Dates: start: 20201112
  17. NP THYROID [Concomitant]
     Active Substance: LEVOTHYROXINE\LIOTHYRONINE
     Indication: PRODUCT USED FOR UNKNOWN INDICATION
     Route: 048
  18. EDTA [Concomitant]
     Active Substance: EDETIC ACID
     Indication: PRODUCT USED FOR UNKNOWN INDICATION
     Dosage: 1500MG THREE CAPSULES ONCE.
     Route: 048
     Dates: start: 20201120, end: 20201214
  19. EDTA [Concomitant]
     Active Substance: EDETIC ACID
     Indication: PRODUCT USED FOR UNKNOWN INDICATION
     Dosage: 20 MGORAL TABLET TAKE TWO TABLETS 40 MG BY MOUTH DAILY IN THE MORNING.
     Route: 048
     Dates: start: 20201202, end: 20201216
  20. VENCLEXTA [Suspect]
     Active Substance: VENETOCLAX
     Dosage: ON WEEK FOUR. GIVE WITH FOOD DO NOT CUT, CRUSH, CHEW TAB
     Route: 048
  21. MINOCYCLINE HCL [Concomitant]
     Active Substance: MINOCYCLINE HYDROCHLORIDE
     Indication: PRODUCT USED FOR UNKNOWN INDICATION
     Dosage: TAKE ONE CAPSULE BY MOUTH TWO TIMES DAILY
     Route: 048
  22. NP THYROID [Concomitant]
     Active Substance: LEVOTHYROXINE\LIOTHYRONINE
     Dosage: TAKE THREE TABLETS IN TWO  DAY
     Route: 048
     Dates: end: 20201216
  23. DEXAMETHASONE. [Concomitant]
     Active Substance: DEXAMETHASONE
     Indication: PRODUCT USED FOR UNKNOWN INDICATION
     Dosage: ORAL TABLET TAKE ONE TABLET DAILY ON MONDAY AND THURSDAYS
     Route: 048
     Dates: end: 20210112
  24. METHYLENE BLUE. [Concomitant]
     Active Substance: METHYLENE BLUE
     Indication: PRODUCT USED FOR UNKNOWN INDICATION
     Dosage: 1 PERCENT INJECTION SOLUTION
     Route: 050
     Dates: end: 20210112

REACTIONS (9)
  - Off label use [Unknown]
  - Pruritus [Unknown]
  - Flatulence [Unknown]
  - Hypotension [Unknown]
  - Nasal congestion [Unknown]
  - Gastrointestinal disorder [Recovering/Resolving]
  - Fatigue [Unknown]
  - Bradycardia [Unknown]
  - Headache [Unknown]
